FAERS Safety Report 7584311-7 (Version None)
Quarter: 2011Q2

REPORT INFORMATION
  Report Type: 
  Country: None (occurrence: None)
  Receive Date: 20110630
  Receipt Date: 20110628
  Transmission Date: 20111010
  Serious: Yes (Life-Threatening)
  Sender: FDA-Public Use
  Company Number: GB-PFIZER INC-2011144704

PATIENT
  Sex: Female

DRUGS (2)
  1. MISOPROSTOL [Suspect]
     Indication: ABORTION INDUCED
     Dosage: 800 UG, UNK
     Route: 067
     Dates: start: 20110614, end: 20110614
  2. MIFEPRISTONE [Concomitant]
     Indication: ABORTION INDUCED
     Dosage: 200 MG, UNK
     Route: 048
     Dates: start: 20110612, end: 20110612

REACTIONS (2)
  - TREMOR [None]
  - CIRCULATORY COLLAPSE [None]
